FAERS Safety Report 5901989-1 (Version None)
Quarter: 2008Q3

REPORT INFORMATION
  Report Type: 
  Country: None (occurrence: None)
  Receive Date: 20080929
  Receipt Date: 20080919
  Transmission Date: 20090109
  Serious: Yes (Hospitalization, Other)
  Sender: FDA-Public Use
  Company Number: US-JNJFOC-20080905252

PATIENT
  Age: 42 Year
  Sex: Female

DRUGS (1)
  1. TOPAMAX [Suspect]
     Indication: MIGRAINE

REACTIONS (4)
  - AMNESIA [None]
  - BIPOLAR DISORDER [None]
  - IMPAIRED DRIVING ABILITY [None]
  - MENTAL IMPAIRMENT [None]
